FAERS Safety Report 15632843 (Version 4)
Quarter: 2019Q1

REPORT INFORMATION
  Report Type: Report from Study
  Country: US (occurrence: US)
  Receive Date: 20181119
  Receipt Date: 20190211
  Transmission Date: 20190417
  Serious: Yes (Other)
  Sender: FDA-Public Use
  Company Number: US-GILEAD-2018-0374624

PATIENT
  Age: 71 Year
  Sex: Female

DRUGS (2)
  1. AMBRISENTAN [Suspect]
     Active Substance: AMBRISENTAN
     Indication: PRODUCT USED FOR UNKNOWN INDICATION
     Dosage: 10 MG
     Route: 065
     Dates: start: 20170810, end: 20190131
  2. OXYGEN. [Concomitant]
     Active Substance: OXYGEN

REACTIONS (6)
  - Pain [Not Recovered/Not Resolved]
  - Rib fracture [Recovered/Resolved]
  - Cataract [Unknown]
  - Vision blurred [Not Recovered/Not Resolved]
  - Fall [Unknown]
  - Product use issue [Not Recovered/Not Resolved]

NARRATIVE: CASE EVENT DATE: 201811
